FAERS Safety Report 8471932-2 (Version None)
Quarter: 2012Q2

REPORT INFORMATION
  Report Type: 
  Country: None (occurrence: None)
  Receive Date: 20120627
  Receipt Date: 20120618
  Transmission Date: 20120825
  Serious: Yes (Other)
  Sender: FDA-Public Use
  Company Number: CN-ASTRAZENECA-2012SE40685

PATIENT

DRUGS (1)
  1. SYMBICORT [Suspect]
     Route: 055

REACTIONS (3)
  - CHEMICAL POISONING [None]
  - HAEMOPTYSIS [None]
  - WRONG TECHNIQUE IN DRUG USAGE PROCESS [None]
